FAERS Safety Report 9598642 (Version 2)
Quarter: 2013Q4

REPORT INFORMATION
  Report Type: Spontaneous
  Country: US (occurrence: US)
  Receive Date: 20131004
  Receipt Date: 20131004
  Transmission Date: 20140711
  Serious: No
  Sender: FDA-Public Use
  Company Number: US-AMGEN-USASP2013019525

PATIENT
  Age: 64 Year
  Sex: Male
  Weight: 77.1 kg

DRUGS (8)
  1. ENBREL [Suspect]
     Indication: PSORIATIC ARTHROPATHY
     Dosage: 50 MG, QWK
     Route: 058
     Dates: start: 201211
  2. ENBREL [Suspect]
     Indication: PSORIASIS
  3. METHOTREXATE [Concomitant]
     Dosage: 2.5 MG, UNK
     Route: 048
  4. LISINOPRIL [Concomitant]
     Dosage: 2.5 MG, UNK
     Route: 048
  5. ASA [Concomitant]
     Dosage: 81 MG, LOW DOSE
     Route: 048
  6. VITAMIN D                          /00107901/ [Concomitant]
     Dosage: 1000 UNIT, UNK
     Route: 048
  7. VYTORIN [Concomitant]
     Dosage: 10-20 MG
     Route: 048
  8. FOLIC ACID [Concomitant]
     Route: 048

REACTIONS (2)
  - Drug ineffective [Unknown]
  - Psoriasis [Unknown]
